FAERS Safety Report 18673675 (Version 1)
Quarter: 2020Q4

REPORT INFORMATION
  Report Type: Report from Study
  Country: US (occurrence: US)
  Receive Date: 20201228
  Receipt Date: 20201228
  Transmission Date: 20210114
  Serious: Yes (Other)
  Sender: FDA-Public Use
  Company Number: US-JNJFOC-20201239228

PATIENT
  Age: 65 Year
  Sex: Female

DRUGS (3)
  1. SPRAVATO [Suspect]
     Active Substance: ESKETAMINE
     Indication: MAJOR DEPRESSION
     Dosage: 56MG, 3 TOTAL DOSES
     Dates: start: 20201021, end: 20201026
  2. SPRAVATO [Suspect]
     Active Substance: ESKETAMINE
     Dosage: 84MG, 9 TOTAL DOSES
     Dates: start: 20201029, end: 20201210
  3. SPRAVATO [Suspect]
     Active Substance: ESKETAMINE
     Dates: start: 20201217, end: 20201217

REACTIONS (1)
  - Dissociation [Recovered/Resolved]

NARRATIVE: CASE EVENT DATE: 20201217
